FAERS Safety Report 10601604 (Version 1)
Quarter: 2014Q4

REPORT INFORMATION
  Report Type: Spontaneous
  Country: DE (occurrence: DE)
  Receive Date: 20141124
  Receipt Date: 20141124
  Transmission Date: 20150529
  Serious: Yes (Hospitalization, Other)
  Sender: FDA-Public Use
  Company Number: DE-PFIZER INC-2014319189

PATIENT
  Sex: Female
  Weight: 3.4 kg

DRUGS (6)
  1. VENLAFAXINE HCL [Suspect]
     Active Substance: VENLAFAXINE HYDROCHLORIDE
     Indication: DEPRESSION
     Dosage: 150 MG, 1X/DAY, 0. - 38.6. GESTATIONAL WEEK
     Route: 064
  2. THYRONAJOD [Concomitant]
     Active Substance: LEVOTHYROXINE SODIUM\POTASSIUM IODIDE
     Indication: HYPOTHYROIDISM
     Dosage: 50 ?G, DAILY, 0. - 38.6. GESTATIONAL WEEK
     Route: 064
  3. METHYLDOPA. [Concomitant]
     Active Substance: METHYLDOPA
     Indication: HYPERTENSION
     Dosage: 250 MG, 2X/DAY, 38.2. - 38.6. GESTATIONAL WEEK
     Route: 064
     Dates: start: 20130705, end: 20130709
  4. UTROGEST [Concomitant]
     Active Substance: PROGESTERONE
     Indication: PROPHYLAXIS OF ABORTION
     Dosage: TRIMESTER: 1ST
     Route: 064
  5. FOLIC ACID. [Concomitant]
     Active Substance: FOLIC ACID
     Indication: PROPHYLAXIS OF NEURAL TUBE DEFECT
     Dosage: TRIMESTER: 1ST
     Route: 064
  6. TRAZODONE [Concomitant]
     Active Substance: TRAZODONE HYDROCHLORIDE
     Indication: DEPRESSION
     Dosage: 0. - 8. GESTATIONAL WEEK
     Route: 064

REACTIONS (10)
  - Maternal exposure during pregnancy [Unknown]
  - Feeding disorder neonatal [Recovered/Resolved]
  - Breech presentation [Unknown]
  - Hypertonia neonatal [Recovered/Resolved]
  - Oxygen saturation decreased [Recovered/Resolved]
  - Myoclonus [Recovered/Resolved]
  - Agitation neonatal [Recovered/Resolved]
  - Convulsion neonatal [Recovered/Resolved]
  - Diarrhoea [Recovered/Resolved]
  - Dyssomnia [Recovered/Resolved]

NARRATIVE: CASE EVENT DATE: 20130709
